FAERS Safety Report 6490602-3 (Version None)
Quarter: 2009Q4

REPORT INFORMATION
  Report Type: 
  Country: None (occurrence: None)
  Receive Date: 20091211
  Receipt Date: 20091130
  Transmission Date: 20100525
  Serious: Yes (Hospitalization, Other)
  Sender: FDA-Public Use
  Company Number: NO-ELI_LILLY_AND_COMPANY-NO200910001305

PATIENT
  Sex: Female

DRUGS (6)
  1. ZYPREXA [Suspect]
     Dosage: 5 MG, UNK
     Route: 048
  2. LANSOPRAZOLE [Concomitant]
     Dosage: 30 MG, DAILY (1/D)
  3. NOZINAN [Concomitant]
     Dosage: 5 MG, EACH EVENING
  4. EFFEXOR [Concomitant]
     Dosage: 225 MG, DAILY (1/D)
  5. TRUXAL [Concomitant]
  6. ALCOHOL [Concomitant]

REACTIONS (3)
  - ARTERIOSCLEROSIS [None]
  - CEREBRAL INFARCTION [None]
  - HYPERTENSION [None]
